FAERS Safety Report 17926201 (Version 2)
Quarter: 2020Q2

REPORT INFORMATION
  Report Type: Spontaneous
  Country: DK (occurrence: DK)
  Receive Date: 20200622
  Receipt Date: 20200624
  Transmission Date: 20200714
  Serious: Yes (Life-Threatening)
  Sender: FDA-Public Use
  Company Number: DK-PFIZER INC-2020235772

PATIENT
  Age: 67 Year
  Sex: Male

DRUGS (20)
  1. ALFUZOSIN STADA [Concomitant]
     Indication: DYSURIA
     Dosage: 10 MG, 1X/DAY
     Route: 048
     Dates: start: 202001
  2. GABAPENTIN. [Concomitant]
     Active Substance: GABAPENTIN
     Indication: NEURALGIA
     Dosage: DOSAGE: VARYING
     Route: 048
     Dates: start: 201806
  3. BUPREFARM [Concomitant]
     Active Substance: BUPRENORPHINE
     Dosage: UNK
     Route: 003
  4. KALIUMKLORID [Concomitant]
     Indication: MINERAL SUPPLEMENTATION
     Dosage: UNK
     Route: 048
  5. ACETYLSALICYLIC ACID [Concomitant]
     Active Substance: ASPIRIN
     Indication: THROMBOSIS PROPHYLAXIS
     Dosage: 75 MG, 1X/DAY
     Route: 048
     Dates: start: 202004
  6. ENALAPRIL SANDOZ [Concomitant]
     Active Substance: ENALAPRIL
     Indication: HYPERTENSION
     Dosage: 5 MG, 1X/DAY
     Route: 048
     Dates: start: 201902
  7. METRONIDAZOL B BRAUN [Concomitant]
     Active Substance: METRONIDAZOLE
     Dosage: UNK
  8. MIRTAZAPINE. [Concomitant]
     Active Substance: MIRTAZAPINE
     Indication: DEPRESSION
     Dosage: 15 MG, 1X/DAY
     Route: 048
     Dates: start: 202002
  9. INNOHEP [Concomitant]
     Active Substance: TINZAPARIN SODIUM
     Dosage: UNK
  10. PANTOPRAZOL STADA [Concomitant]
     Indication: PROPHYLAXIS AGAINST GASTROINTESTINAL ULCER
     Dosage: 40 MG, 1X/DAY
     Route: 048
     Dates: start: 201807
  11. APOVIT B COMBIN [Concomitant]
     Indication: VITAMIN SUPPLEMENTATION
     Dosage: UNK
     Route: 048
  12. PARACETAMOL ORIFARM [Concomitant]
     Indication: PAIN
     Dosage: 3990 MG, 1X/DAY
     Route: 048
     Dates: start: 201911
  13. FUROSEMID ACCORD [Concomitant]
     Dosage: UNK
  14. CALCIUM + VIT D [Concomitant]
     Active Substance: CALCIUM\VITAMIN D
     Indication: MINERAL SUPPLEMENTATION
     Dosage: UNK
     Route: 048
  15. OXYCODON LANNACHER [Concomitant]
     Active Substance: OXYCODONE
     Indication: PAIN
     Dosage: 20 MG, 1X/DAY
     Route: 048
     Dates: start: 202002
  16. NITROLINGUAL [Concomitant]
     Active Substance: NITROGLYCERIN
     Dosage: STRENGTH: 0.4 MG/DOSAGE
     Route: 060
  17. JERN C [Concomitant]
     Indication: MINERAL SUPPLEMENTATION
     Dosage: UNK
     Route: 048
  18. COMBAR [Concomitant]
     Active Substance: MIRTAZAPINE
     Indication: DEPRESSION
     Dosage: 15 MG, 1X/DAY
     Route: 048
     Dates: start: 202002
  19. ECALTA [Suspect]
     Active Substance: ANIDULAFUNGIN
     Indication: FUNGAL INFECTION
     Dosage: 200 MG, 1X/DAY
     Route: 042
     Dates: start: 20200508, end: 20200528
  20. LAMOTRIGINE. [Concomitant]
     Active Substance: LAMOTRIGINE
     Indication: EPILEPSY
     Dosage: DOSAGE: VARYING. STRENGTH: 100 MG AND 25 MG.
     Route: 048
     Dates: start: 202004

REACTIONS (4)
  - Atrial flutter [Unknown]
  - Hypokalaemia [Not Recovered/Not Resolved]
  - Cardiac arrest [Recovered/Resolved]
  - Ventricular tachycardia [Recovered/Resolved]

NARRATIVE: CASE EVENT DATE: 20200527
